FAERS Safety Report 13378358 (Version 1)
Quarter: 2017Q1

REPORT INFORMATION
  Report Type: Spontaneous
  Country: US (occurrence: US)
  Receive Date: 20170328
  Receipt Date: 20170328
  Transmission Date: 20170429
  Serious: No
  Sender: FDA-Public Use
  Company Number: US-ROCHE-1059607

PATIENT
  Sex: Female

DRUGS (7)
  1. SINGULAIR [Concomitant]
     Active Substance: MONTELUKAST SODIUM
  2. VITAMIN D [Concomitant]
     Active Substance: CHOLECALCIFEROL
  3. XOLAIR [Suspect]
     Active Substance: OMALIZUMAB
     Indication: ASTHMA
     Route: 065
  4. FISH OIL [Concomitant]
     Active Substance: FISH OIL
  5. ALLERGY SHOT [Concomitant]
     Active Substance: UNSPECIFIED INGREDIENT
  6. VITAMIN C [Concomitant]
     Active Substance: ASCORBIC ACID
  7. MVI [Concomitant]
     Active Substance: VITAMINS

REACTIONS (3)
  - Thrombocytopenia [Unknown]
  - Vitamin B12 decreased [Unknown]
  - Anaemia [Unknown]
